FAERS Safety Report 10202183 (Version 1)
Quarter: 2014Q2

REPORT INFORMATION
  Report Type: Spontaneous
  Country: CZ (occurrence: CZ)
  Receive Date: 20140528
  Receipt Date: 20140528
  Transmission Date: 20141212
  Serious: Yes (Disabling)
  Sender: FDA-Public Use
  Company Number: CZ-GLAXOSMITHKLINE-B0996571A

PATIENT
  Age: 67 Year
  Sex: Female

DRUGS (1)
  1. VOTRIENT [Suspect]
     Indication: RENAL CANCER
     Dosage: 200MG PER DAY
     Route: 065
     Dates: start: 20140321, end: 20140509

REACTIONS (2)
  - General physical health deterioration [Unknown]
  - Dyspnoea [Unknown]
